FAERS Safety Report 5089804-2 (Version None)
Quarter: 2006Q3

REPORT INFORMATION
  Report Type: 
  Country: None (occurrence: None)
  Receive Date: 20060828
  Receipt Date: 20060807
  Transmission Date: 20061208
  Serious: Yes (Death, Life-Threatening)
  Sender: FDA-Public Use
  Company Number: JP-BRACCO-BEI-006519

PATIENT
  Age: 78 Year
  Sex: Male
  Weight: 62 kg

DRUGS (5)
  1. PROHANCE [Suspect]
     Indication: DIAGNOSTIC PROCEDURE
     Route: 042
     Dates: start: 20060802, end: 20060802
  2. FERROMIA [Concomitant]
     Route: 048
     Dates: start: 20060724, end: 20060802
  3. CHINESE HERBAL MEDICINE [Concomitant]
     Route: 048
     Dates: start: 20050308, end: 20060802
  4. LACB-R [Concomitant]
     Route: 048
     Dates: start: 20050218, end: 20060802
  5. MAGNESIUM OXIDE [Concomitant]
     Route: 048
     Dates: start: 20050218, end: 20060802

REACTIONS (6)
  - CARDIO-RESPIRATORY ARREST [None]
  - DEPRESSED LEVEL OF CONSCIOUSNESS [None]
  - ELECTROMECHANICAL DISSOCIATION [None]
  - FEELING ABNORMAL [None]
  - HYPOGLYCAEMIA [None]
  - PUPIL FIXED [None]
